FAERS Safety Report 18231680 (Version 2)
Quarter: 2020Q3

REPORT INFORMATION
  Report Type: Spontaneous
  Country: JP (occurrence: JP)
  Receive Date: 20200904
  Receipt Date: 20200910
  Transmission Date: 20201103
  Serious: Yes (Death)
  Sender: FDA-Public Use
  Company Number: NVSJ2020JP008523

PATIENT
  Age: 42 Year
  Sex: Female
  Weight: 33.2 kg

DRUGS (2)
  1. PAZOPANIB [Suspect]
     Active Substance: PAZOPANIB
     Dosage: UNK
     Route: 048
  2. PAZOPANIB [Suspect]
     Active Substance: PAZOPANIB
     Indication: UTERINE LEIOMYOSARCOMA
     Dosage: 400 MG
     Route: 048

REACTIONS (5)
  - Malignant neoplasm progression [Fatal]
  - Metastases to liver [Fatal]
  - Uterine leiomyosarcoma [Fatal]
  - Asthenia [Fatal]
  - Liver disorder [Fatal]
